FAERS Safety Report 5903183-7 (Version None)
Quarter: 2008Q3

REPORT INFORMATION
  Report Type: 
  Country: None (occurrence: None)
  Receive Date: 20080929
  Receipt Date: 20080929
  Transmission Date: 20090109
  Serious: Yes (Hospitalization, Other)
  Sender: FDA-Public Use
  Company Number: None

PATIENT
  Age: 62 Year
  Sex: Female
  Weight: 72.5755 kg

DRUGS (1)
  1. XANAX [Suspect]
     Indication: ANXIETY
     Dosage: 4 MGS 4XDAY PO
     Route: 048
     Dates: start: 20060510, end: 20080816

REACTIONS (5)
  - BEDRIDDEN [None]
  - DRUG DEPENDENCE [None]
  - DRUG WITHDRAWAL SYNDROME [None]
  - GASTROINTESTINAL DISORDER [None]
  - NERVOUS SYSTEM DISORDER [None]
